FAERS Safety Report 4640609-3 (Version None)
Quarter: 2005Q2

REPORT INFORMATION
  Report Type: 
  Country: None (occurrence: None)
  Receive Date: 20050419
  Receipt Date: 20050411
  Transmission Date: 20051028
  Serious: Yes (Disabling)
  Sender: FDA-Public Use
  Company Number: 05H-286-0297159-00

PATIENT
  Age: 46 Year
  Sex: Male

DRUGS (2)
  1. METRONIDAZOLE [Suspect]
     Indication: CHOLANGITIS ACUTE
  2. CEFOXTAXIME [Concomitant]

REACTIONS (4)
  - APALLIC SYNDROME [None]
  - CIRCADIAN RHYTHM SLEEP DISORDER [None]
  - COMA [None]
  - ENCEPHALOPATHY [None]
